FAERS Safety Report 9013292 (Version 1)
Quarter: 2013Q1

REPORT INFORMATION
  Report Type: Spontaneous
  Country: US (occurrence: US)
  Receive Date: 20130115
  Receipt Date: 20130115
  Transmission Date: 20140127
  Serious: Yes (Other)
  Sender: FDA-Public Use
  Company Number: US-009507513-1007USA03927

PATIENT
  Age: 6 Year
  Sex: Male
  Weight: 19.51 kg

DRUGS (1)
  1. SINGULAIR [Suspect]
     Indication: ASTHMA
     Dosage: 5 MG, HS
     Route: 048
     Dates: start: 20081201, end: 20091216

REACTIONS (6)
  - Attention deficit/hyperactivity disorder [Unknown]
  - Decreased appetite [Unknown]
  - Aggression [Unknown]
  - Fatigue [Unknown]
  - Hallucination, auditory [Unknown]
  - Nightmare [Unknown]
